FAERS Safety Report 9933311 (Version 1)
Quarter: 2014Q1

REPORT INFORMATION
  Report Type: Spontaneous
  Country: US (occurrence: US)
  Receive Date: 20140228
  Receipt Date: 20140228
  Transmission Date: 20141002
  Serious: No
  Sender: FDA-Public Use
  Company Number: US-MYLANLABS-2013S1004611

PATIENT
  Age: 46 Year
  Sex: Female
  Weight: 56.7 kg

DRUGS (5)
  1. AMNESTEEM CAPSULES [Suspect]
     Dates: end: 20121101
  2. AMNESTEEM CAPSULES [Suspect]
     Dates: start: 20121102, end: 20121127
  3. AMNESTEEM CAPSULES [Suspect]
     Dates: start: 20121128
  4. MYORISAN [Suspect]
     Indication: ACNE CYSTIC
     Route: 048
     Dates: start: 20121002, end: 20121127
  5. MYORISAN [Suspect]
     Indication: ACNE CYSTIC
     Route: 048
     Dates: start: 20121128, end: 20121228

REACTIONS (2)
  - Bursitis [Recovering/Resolving]
  - Arthralgia [Recovered/Resolved]
